FAERS Safety Report 17093210 (Version 1)
Quarter: 2019Q4

REPORT INFORMATION
  Report Type: Spontaneous
  Country: DE (occurrence: DE)
  Receive Date: 20191129
  Receipt Date: 20191129
  Transmission Date: 20200122
  Serious: Yes (Other)
  Sender: FDA-Public Use
  Company Number: DE-TEVA-2019-DE-1143156

PATIENT
  Age: 39 Year
  Sex: Female
  Weight: 86 kg

DRUGS (6)
  1. ACICLOVIR [Concomitant]
     Active Substance: ACYCLOVIR
     Indication: GENITAL HERPES
     Dosage: 1200 [MG/D ]
     Route: 048
     Dates: start: 20190529, end: 20190604
  2. LEVEMIR [Concomitant]
     Active Substance: INSULIN DETEMIR
     Indication: GESTATIONAL DIABETES
     Dosage: 10 [I.E./D ]
     Route: 058
     Dates: start: 20190211, end: 20190604
  3. NOVORAPID [Concomitant]
     Active Substance: INSULIN ASPART
     Indication: GESTATIONAL DIABETES
     Dosage: 11 [I.E./D (7-4 I.E.) ]
     Route: 058
     Dates: start: 20190211, end: 20190604
  4. PREDNISOLONE. [Suspect]
     Active Substance: PREDNISOLONE
     Indication: URTICARIAL VASCULITIS
     Dosage: 20 [MG/D (BIS 5 MG/D) ]
     Route: 048
     Dates: start: 20180916, end: 20190604
  5. MINPROSTIN [Concomitant]
     Active Substance: DINOPROSTONE
     Indication: LABOUR INDUCTION
     Route: 067
  6. L-THYROXIN [Concomitant]
     Active Substance: LEVOTHYROXINE SODIUM
     Indication: HYPOTHYROIDISM
     Dosage: 50 [MCG/D ]
     Route: 048
     Dates: start: 20180916, end: 20190604

REACTIONS (2)
  - Gestational diabetes [Recovered/Resolved]
  - Amniotic fluid volume increased [Recovered/Resolved]
